FAERS Safety Report 7302528-3 (Version None)
Quarter: 2011Q1

REPORT INFORMATION
  Report Type: 
  Country: None (occurrence: None)
  Receive Date: 20110218
  Receipt Date: 20110215
  Transmission Date: 20110831
  Serious: No
  Sender: FDA-Public Use
  Company Number: US-PFIZER INC-2011033931

PATIENT
  Sex: Female
  Weight: 76 kg

DRUGS (3)
  1. XALATAN [Suspect]
     Indication: GLAUCOMA
     Dosage: ONE DROP IN EACH EYE DAILY
     Route: 047
     Dates: start: 20080101
  2. LEVOTHYROXINE [Concomitant]
     Indication: THYROID DISORDER
     Dosage: UNK
  3. TRIAMTERENE [Concomitant]
     Dosage: UNK

REACTIONS (3)
  - NASOPHARYNGITIS [None]
  - SINUSITIS [None]
  - NASAL CONGESTION [None]
